FAERS Safety Report 8504121-3 (Version None)
Quarter: 2012Q3

REPORT INFORMATION
  Report Type: 
  Country: None (occurrence: None)
  Receive Date: 20120711
  Receipt Date: 20120706
  Transmission Date: 20120928
  Serious: Yes (Other)
  Sender: FDA-Public Use
  Company Number: PHEH2012US012294

PATIENT
  Sex: Female

DRUGS (6)
  1. ATORVASTATIN [Concomitant]
     Dosage: UNK
  2. METFORMIN HCL [Concomitant]
     Dosage: 500 MG, UNK
  3. DILTIAZEM HYDROCHOLORIDE [Concomitant]
     Dosage: UNK
  4. DIOVAN [Suspect]
     Dosage: 320 MG, UNK
  5. TORADOL [Suspect]
     Dosage: 10 MG, UNK
  6. POTASSIUM CHLORIDE [Concomitant]
     Dosage: 20 MG, UNK

REACTIONS (3)
  - DIABETES MELLITUS [None]
  - DRUG INTERACTION [None]
  - BACK PAIN [None]
